FAERS Safety Report 4979817-0 (Version None)
Quarter: 2006Q2

REPORT INFORMATION
  Report Type: 
  Country: None (occurrence: None)
  Receive Date: 20060421
  Receipt Date: 20060331
  Transmission Date: 20061013
  Serious: Yes (Death, Life-Threatening, Disabling, Other)
  Sender: FDA-Public Use
  Company Number: US-MERCK-0604USA00030

PATIENT
  Age: 48 Year
  Sex: Male

DRUGS (7)
  1. SINGULAIR [Suspect]
     Indication: ASTHMA
     Route: 048
     Dates: start: 20060306, end: 20060329
  2. ALBUTEROL [Concomitant]
     Route: 055
  3. ALBUTEROL [Concomitant]
     Route: 055
  4. FLONASE [Concomitant]
     Route: 065
  5. XOPENEX [Concomitant]
     Route: 065
  6. ADVAIR DISKUS 100/50 [Concomitant]
     Route: 065
  7. DOXYCYCLINE [Concomitant]
     Route: 065

REACTIONS (1)
  - ASTHMA [None]
